FAERS Safety Report 7442588-2 (Version None)
Quarter: 2011Q2

REPORT INFORMATION
  Report Type: 
  Country: None (occurrence: None)
  Receive Date: 20110425
  Receipt Date: 20110425
  Transmission Date: 20111010
  Serious: Yes (Other)
  Sender: FDA-Public Use
  Company Number: None

PATIENT
  Age: 66 Year
  Sex: Female
  Weight: 74.8435 kg

DRUGS (2)
  1. ADVAIR DISKUS 100/50 [Suspect]
     Indication: CHRONIC OBSTRUCTIVE PULMONARY DISEASE
     Dosage: 1 INHALATION BID PO
     Route: 048
     Dates: start: 20101004, end: 20110421
  2. ADVAIR DISKUS 100/50 [Suspect]
     Indication: ASTHMA
     Dosage: 1 INHALATION BID PO
     Route: 048
     Dates: start: 20101004, end: 20110421

REACTIONS (3)
  - OESOPHAGEAL CANDIDIASIS [None]
  - DYSPHAGIA [None]
  - BARRETT'S OESOPHAGUS [None]
